FAERS Safety Report 24333317 (Version 1)
Quarter: 2024Q3

REPORT INFORMATION
  Report Type: Spontaneous
  Country: US (occurrence: None)
  Receive Date: 20240917
  Receipt Date: 20240917
  Transmission Date: 20241017
  Serious: Yes (Hospitalization)
  Sender: Public
  Company Number: None

PATIENT
  Age: 76 Year
  Sex: Male

DRUGS (11)
  1. XOLAIR [Suspect]
     Active Substance: OMALIZUMAB
     Indication: Asthma
     Dosage: FREQUENCY : MONTHLY;?
     Route: 058
     Dates: start: 20190122
  2. ADVAIR DISKU AER [Concomitant]
  3. CACLIUM 600 +D [Concomitant]
  4. DEXILANT [Concomitant]
     Active Substance: DEXLANSOPRAZOLE
  5. FLONASE [Concomitant]
     Active Substance: FLUTICASONE PROPIONATE
  6. FOSAMAX + D [Concomitant]
  7. GLUCOS/CHOND [Concomitant]
  8. KP VITAMIN D [Concomitant]
  9. LEVOTHYROXIN [Concomitant]
  10. LIMBREL [Concomitant]
  11. LOSARTAN POT [Concomitant]

REACTIONS (1)
  - Neck surgery [None]

NARRATIVE: CASE EVENT DATE: 20240909
